FAERS Safety Report 21357047 (Version 2)
Quarter: 2022Q4

REPORT INFORMATION
  Report Type: Report from Study
  Country: US (occurrence: US)
  Receive Date: 20220921
  Receipt Date: 20221201
  Transmission Date: 20230113
  Serious: No
  Sender: FDA-Public Use
  Company Number: US-ABBVIE-4127748

PATIENT
  Sex: Female

DRUGS (4)
  1. RINVOQ [Suspect]
     Active Substance: UPADACITINIB
     Indication: Rheumatoid arthritis
     Dosage: EXTENDED RELEASE
     Route: 048
     Dates: start: 20220831, end: 20221107
  2. PFIZER-BIONTECH COVID-19 VACCINE [Concomitant]
     Active Substance: TOZINAMERAN
     Indication: COVID-19 immunisation
     Dosage: 1ST DOSE 1 IN ONCE.
     Route: 030
  3. PFIZER-BIONTECH COVID-19 VACCINE [Concomitant]
     Active Substance: TOZINAMERAN
     Indication: COVID-19 immunisation
     Dosage: 2ND DOSE 1 IN ONCE
     Route: 030
  4. PFIZER-BIONTECH COVID-19 VACCINE [Concomitant]
     Active Substance: TOZINAMERAN
     Indication: COVID-19 immunisation
     Dosage: BOOSTER DOSE 1 IN ONCE
     Route: 030

REACTIONS (17)
  - Pain [Recovered/Resolved]
  - Skin discolouration [Unknown]
  - Arthralgia [Recovered/Resolved]
  - Tinnitus [Recovering/Resolving]
  - Chest pain [Recovering/Resolving]
  - Dysphagia [Recovering/Resolving]
  - Fatigue [Recovering/Resolving]
  - Acne [Recovering/Resolving]
  - Arthralgia [Recovering/Resolving]
  - Swelling face [Recovering/Resolving]
  - Skin disorder [Unknown]
  - Dysphagia [Unknown]
  - Candida infection [Unknown]
  - Arthritis [Unknown]
  - Swollen tongue [Unknown]
  - Mouth swelling [Unknown]
  - Swelling face [Unknown]
